FAERS Safety Report 10032227 (Version 2)
Quarter: 2014Q1

REPORT INFORMATION
  Report Type: Spontaneous
  Country: US (occurrence: US)
  Receive Date: 20140324
  Receipt Date: 20140324
  Transmission Date: 20141002
  Serious: Yes (Other)
  Sender: FDA-Public Use
  Company Number: US-BEH-2012034237

PATIENT
  Age: 74 Year
  Sex: Female

DRUGS (1)
  1. HIZENTRA [Suspect]
     Dosage: BEGINNING JUN-2012
     Route: 058

REACTIONS (6)
  - Blood alkaline phosphatase increased [Unknown]
  - Aspartate aminotransferase increased [Unknown]
  - Alanine aminotransferase increased [Unknown]
  - Hypersensitivity [Unknown]
  - Infusion site hypersensitivity [Unknown]
  - Infusion site erythema [Unknown]
